FAERS Safety Report 13545784 (Version 1)
Quarter: 2017Q2

REPORT INFORMATION
  Report Type: Spontaneous
  Country: US (occurrence: US)
  Receive Date: 20170515
  Receipt Date: 20170515
  Transmission Date: 20170830
  Serious: No
  Sender: FDA-Public Use
  Company Number: US-WARNER CHILCOTT-2016-001883

PATIENT
  Age: 77 Year
  Sex: Female
  Weight: 50.79 kg

DRUGS (5)
  1. ACTONEL [Suspect]
     Active Substance: RISEDRONATE SODIUM
     Indication: SCOLIOSIS
  2. VITAMINS NOS [Concomitant]
     Active Substance: VITAMINS
     Dosage: UNK
  3. RESTASIS [Concomitant]
     Active Substance: CYCLOSPORINE
     Indication: RETINAL DISORDER
     Dosage: UNK
  4. ACTONEL [Suspect]
     Active Substance: RISEDRONATE SODIUM
     Indication: BONE DISORDER
     Dosage: 150 MG, SINGLE
     Route: 048
     Dates: start: 20160816, end: 20160816
  5. CELEBREX [Concomitant]
     Active Substance: CELECOXIB
     Indication: BONE DISORDER
     Dosage: 100 MG, QD

REACTIONS (12)
  - Dyspnoea [Not Recovered/Not Resolved]
  - Tremor [Recovered/Resolved]
  - Pain [Recovered/Resolved]
  - Dizziness [Not Recovered/Not Resolved]
  - Nausea [Not Recovered/Not Resolved]
  - Somnolence [Not Recovered/Not Resolved]
  - Hypersensitivity [Not Recovered/Not Resolved]
  - Pain of skin [Recovered/Resolved]
  - Bone pain [Recovered/Resolved]
  - Headache [Not Recovered/Not Resolved]
  - Dysstasia [Not Recovered/Not Resolved]
  - Gait disturbance [Not Recovered/Not Resolved]

NARRATIVE: CASE EVENT DATE: 20160817
